FAERS Safety Report 8104074-6 (Version None)
Quarter: 2012Q1

REPORT INFORMATION
  Report Type: 
  Country: None (occurrence: None)
  Receive Date: 20120201
  Receipt Date: 20120126
  Transmission Date: 20120608
  Serious: No
  Sender: FDA-Public Use
  Company Number: US-PFIZER INC-2012023359

PATIENT
  Sex: Female
  Weight: 72.562 kg

DRUGS (18)
  1. TORISEL [Suspect]
     Indication: RENAL CELL CARCINOMA
     Dosage: 25 MG, 2 WEEKS ON AND 1 WEEK OFF
  2. VITAMIN B-12 [Concomitant]
     Dosage: DAILY
  3. LANTUS [Concomitant]
     Dosage: TWICE DAILY
  4. ASPIRIN [Concomitant]
     Dosage: 325 MG, DAILY
  5. CLONAZEPAM [Concomitant]
     Dosage: 2 MG, UNK
  6. LEVOTHYROXINE [Concomitant]
     Dosage: 150 UG, DAILY
  7. POTASSIUM [Concomitant]
     Dosage: 20 MEQ, 2X/DAY
  8. CYMBALTA [Concomitant]
     Dosage: 60 MG, 4X/DAY
  9. LISINOPRIL [Concomitant]
     Dosage: 5 MG, 2X/DAY
  10. LIPITOR [Concomitant]
     Dosage: 5 MG, 2X/DAY
  11. LASIX [Concomitant]
     Dosage: 20 MG, 2X/DAY
  12. HUMALOG [Concomitant]
     Dosage: UNK
  13. OMEPRAZOLE [Concomitant]
     Dosage: 20 MG, 3X/DAY
  14. COREG [Concomitant]
     Dosage: 25 MG, 2X/DAY
  15. LACTULOSE [Concomitant]
     Dosage: 10 MG, AS NEEDED
  16. OXYCONTIN [Concomitant]
     Dosage: 50 MG, DAILY
  17. BIOTIN [Concomitant]
     Dosage: DAILY
  18. REQUIP [Concomitant]
     Dosage: 1 MG, 4X/DAY

REACTIONS (2)
  - DISEASE PROGRESSION [None]
  - RENAL CELL CARCINOMA [None]
